FAERS Safety Report 18154496 (Version 2)
Quarter: 2025Q2

REPORT INFORMATION
  Report Type: Spontaneous
  Country: FR (occurrence: FR)
  Receive Date: 20200817
  Receipt Date: 20250628
  Transmission Date: 20250717
  Serious: Yes (Life-Threatening, Hospitalization, Other)
  Sender: AUROBINDO
  Company Number: FR-MLMSERVICE-20200731-2414979-1

PATIENT
  Age: 206 Day
  Sex: Female
  Weight: 1.25 kg

DRUGS (7)
  1. OXYCODONE [Suspect]
     Active Substance: OXYCODONE
     Indication: Procedural pain
     Dosage: 5 MILLIGRAM, FOUR TIMES/DAY
     Route: 064
  2. NEFOPAM [Suspect]
     Active Substance: NEFOPAM
     Indication: Procedural pain
     Dosage: 120 MILLIGRAM, ONCE A DAY
     Route: 064
  3. MORPHINE [Suspect]
     Active Substance: MORPHINE
     Indication: Procedural pain
     Route: 064
  4. MORPHINE [Suspect]
     Active Substance: MORPHINE
     Dosage: UNK, ONCE A DAY (MEAN DOSE OF 50 MG OF OXYNORM )
     Route: 064
  5. OXYCODONE HYDROCHLORIDE [Suspect]
     Active Substance: OXYCODONE HYDROCHLORIDE
     Indication: Back pain
     Dosage: 50 MILLIGRAM, ONCE A DAY
     Route: 064
  6. ATOSIBAN [Concomitant]
     Active Substance: ATOSIBAN
     Indication: Tocolysis
     Route: 064
  7. ATOSIBAN [Concomitant]
     Active Substance: ATOSIBAN
     Indication: Uterine contractions during pregnancy

REACTIONS (8)
  - Foetal megacystis [Recovered/Resolved]
  - Page kidney [Recovered/Resolved]
  - Foetal exposure during pregnancy [Recovered/Resolved]
  - Ascites [Recovered/Resolved]
  - Urinary bladder rupture [Recovered/Resolved]
  - Peritonitis [Recovered/Resolved]
  - Premature baby [Recovered/Resolved]
  - Small for dates baby [Recovered/Resolved]
